FAERS Safety Report 18099253 (Version 2)
Quarter: 2020Q4

REPORT INFORMATION
  Report Type: Report from Study
  Country: ES (occurrence: ES)
  Receive Date: 20200731
  Receipt Date: 20201009
  Transmission Date: 20210113
  Serious: Yes (Other)
  Sender: FDA-Public Use
  Company Number: ES-ORION CORPORATION ORION PHARMA-20_00010186

PATIENT
  Age: 77 Year
  Sex: Male

DRUGS (4)
  1. AZILECT [Suspect]
     Active Substance: RASAGILINE MESYLATE
     Indication: ON AND OFF PHENOMENON
     Route: 065
  2. STALEVO [Suspect]
     Active Substance: CARBIDOPA\ENTACAPONE\LEVODOPA
     Indication: ON AND OFF PHENOMENON
     Route: 065
  3. ONGENTYS [Suspect]
     Active Substance: OPICAPONE
     Indication: ON AND OFF PHENOMENON
     Route: 065
  4. LEVODOPA [Concomitant]
     Active Substance: LEVODOPA
     Indication: ON AND OFF PHENOMENON
     Dosage: DOSE: 600 (NO UNITS)
     Route: 065

REACTIONS (6)
  - Therapeutic response shortened [Unknown]
  - Constipation [Unknown]
  - Bradykinesia [Unknown]
  - Dystonia [Unknown]
  - Reduced facial expression [Unknown]
  - Tremor [Unknown]
